FAERS Safety Report 18117429 (Version 6)
Quarter: 2022Q3

REPORT INFORMATION
  Report Type: Report from Study
  Country: JP (occurrence: JP)
  Receive Date: 20200805
  Receipt Date: 20220810
  Transmission Date: 20221027
  Serious: Yes (Hospitalization)
  Sender: FDA-Public Use
  Company Number: JP-ABBVIE-20K-087-3321687-00

PATIENT
  Age: 55 Year
  Sex: Female

DRUGS (3)
  1. CARBIDOPA\LEVODOPA [Suspect]
     Active Substance: CARBIDOPA\LEVODOPA
     Indication: Parkinson^s disease
     Route: 050
     Dates: start: 20200219, end: 2020
  2. CARBIDOPA\LEVODOPA [Suspect]
     Active Substance: CARBIDOPA\LEVODOPA
     Dosage: DOSE INCREASED
     Route: 050
     Dates: start: 202006, end: 2020
  3. CARBIDOPA\LEVODOPA [Suspect]
     Active Substance: CARBIDOPA\LEVODOPA
     Dosage: DOSE DECREASED
     Route: 050
     Dates: start: 20200806

REACTIONS (30)
  - Mental disorder [Unknown]
  - Skin disorder [Unknown]
  - Mobility decreased [Unknown]
  - Device colour issue [Unknown]
  - Product storage error [Unknown]
  - Product administration error [Unknown]
  - Medical device site erosion [Unknown]
  - Muscle contracture [Unknown]
  - Eating disorder [Unknown]
  - Asthenia [Unknown]
  - Tremor [Unknown]
  - Pyrexia [Unknown]
  - Malaise [Recovered/Resolved]
  - Malaise [Recovered/Resolved]
  - Malaise [Recovered/Resolved]
  - Malaise [Recovered/Resolved]
  - Hypoaesthesia [Unknown]
  - Malaise [Unknown]
  - Asthenia [Unknown]
  - Malaise [Recovered/Resolved]
  - Weight increased [Unknown]
  - On and off phenomenon [Unknown]
  - Parkinson^s disease [Unknown]
  - Stoma site abscess [Unknown]
  - Stoma site pain [Unknown]
  - Stoma site discharge [Unknown]
  - Abdominal pain [Unknown]
  - Stoma site pain [Recovered/Resolved]
  - Stoma site haemorrhage [Unknown]
  - Drug ineffective [Unknown]

NARRATIVE: CASE EVENT DATE: 20200101
